FAERS Safety Report 22681187 (Version 4)
Quarter: 2025Q1

REPORT INFORMATION
  Report Type: Spontaneous
  Country: US (occurrence: US)
  Receive Date: 20230707
  Receipt Date: 20250211
  Transmission Date: 20250409
  Serious: No
  Sender: SANOFI AVENTIS
  Company Number: US-SA-SAC20230707000077

PATIENT
  Sex: Female
  Weight: 79.83 kg

DRUGS (3)
  1. DUPIXENT [Suspect]
     Active Substance: DUPILUMAB
     Indication: Psoriasis
     Dosage: 300 MG, QOW
     Route: 058
  2. DUPIXENT [Suspect]
     Active Substance: DUPILUMAB
     Indication: Dermatitis atopic
  3. OTEZLA [Concomitant]
     Active Substance: APREMILAST

REACTIONS (10)
  - Osteoarthritis [Unknown]
  - Joint swelling [Unknown]
  - Joint stiffness [Unknown]
  - Gait disturbance [Unknown]
  - Inflammation [Unknown]
  - Dermatitis atopic [Unknown]
  - Skin exfoliation [Unknown]
  - Pruritus [Unknown]
  - Arthralgia [Unknown]
  - Product use in unapproved indication [Unknown]
